FAERS Safety Report 21855328 (Version 3)
Quarter: 2023Q1

REPORT INFORMATION
  Report Type: Report from Study
  Country: US (occurrence: US)
  Receive Date: 20230112
  Receipt Date: 20230201
  Transmission Date: 20230418
  Serious: No
  Sender: FDA-Public Use
  Company Number: US-AGIOS-2301US03234

PATIENT
  Sex: Female

DRUGS (1)
  1. MITAPIVAT [Suspect]
     Active Substance: MITAPIVAT
     Indication: Pyruvate kinase deficiency anaemia
     Dosage: 5 MILLIGRAM
     Route: 048
     Dates: start: 20221230

REACTIONS (6)
  - Back pain [Unknown]
  - Serum ferritin increased [Recovering/Resolving]
  - Inflammation [Recovering/Resolving]
  - Bone pain [Recovering/Resolving]
  - Malaise [Unknown]
  - Fatigue [Unknown]
